FAERS Safety Report 16307328 (Version 2)
Quarter: 2019Q2

REPORT INFORMATION
  Report Type: Spontaneous
  Country: US (occurrence: US)
  Receive Date: 20190514
  Receipt Date: 20190624
  Transmission Date: 20190711
  Serious: Yes (Death, Hospitalization, Other)
  Sender: FDA-Public Use
  Company Number: US-ASTELLAS-2019US020059

PATIENT
  Age: 58 Year
  Sex: Male

DRUGS (4)
  1. RITUXIMAB. [Concomitant]
     Active Substance: RITUXIMAB
     Indication: LIVER TRANSPLANT
     Route: 065
     Dates: start: 2016
  2. TACROLIMUS. [Suspect]
     Active Substance: TACROLIMUS
     Indication: LIVER TRANSPLANT
     Route: 065
     Dates: start: 2016
  3. METHYLPREDNISOLONE. [Concomitant]
     Active Substance: METHYLPREDNISOLONE
     Indication: LIVER TRANSPLANT
     Route: 065
     Dates: start: 2016
  4. ANTITHYMOCYTE IMMUNOGLOBULIN [Concomitant]
     Active Substance: THYMOCYTE IMMUNE GLOBULIN NOS
     Indication: LIVER TRANSPLANT
     Dosage: 150 MG/KG, UNKNOWN FREQ.(3 DOSES)
     Route: 065
     Dates: start: 2016

REACTIONS (10)
  - Strongyloidiasis [Fatal]
  - Neurological decompensation [Unknown]
  - Klebsiella infection [Unknown]
  - Purpura [Unknown]
  - Ileus [Unknown]
  - Bronchopulmonary aspergillosis [Unknown]
  - Escherichia infection [Unknown]
  - Multiple organ dysfunction syndrome [Unknown]
  - Hyponatraemia [Unknown]
  - Respiratory failure [Unknown]

NARRATIVE: CASE EVENT DATE: 2016
